FAERS Safety Report 5406102-5 (Version None)
Quarter: 2007Q3

REPORT INFORMATION
  Report Type: 
  Country: None (occurrence: None)
  Receive Date: 20070806
  Receipt Date: 20070725
  Transmission Date: 20080115
  Serious: Yes (Hospitalization)
  Sender: FDA-Public Use
  Company Number: GB-ROCHE-502994

PATIENT
  Age: 53 Year
  Sex: Male
  Weight: 105.6 kg

DRUGS (3)
  1. XENICAL [Suspect]
     Indication: OBESITY
     Route: 048
     Dates: start: 20050928
  2. AMLOPINE [Concomitant]
     Route: 048
     Dates: start: 20060330
  3. ENALAPRIL MALEATE [Concomitant]
     Route: 048
     Dates: start: 20060801

REACTIONS (1)
  - PERITONSILLAR ABSCESS [None]
